FAERS Safety Report 4918928-2 (Version None)
Quarter: 2006Q1

REPORT INFORMATION
  Report Type: 
  Country: None (occurrence: None)
  Receive Date: 20060222
  Receipt Date: 20051012
  Transmission Date: 20060701
  Serious: Yes (Other)
  Sender: FDA-Public Use
  Company Number: US-MERCK-0510USA07098

PATIENT
  Age: 52 Year
  Sex: Male
  Weight: 82 kg

DRUGS (9)
  1. VIOXX [Suspect]
     Indication: ARTHRITIS
     Route: 048
     Dates: start: 20020901, end: 20040930
  2. SINEMET [Concomitant]
     Indication: RESTLESS LEGS SYNDROME
     Route: 048
  3. NEXIUM [Concomitant]
     Indication: GASTROOESOPHAGEAL REFLUX DISEASE
     Route: 065
  4. BENTYL [Concomitant]
     Indication: GASTROOESOPHAGEAL REFLUX DISEASE
     Route: 065
  5. BENTYL [Concomitant]
     Indication: DYSPEPSIA
     Route: 065
  6. CLINORIL [Concomitant]
     Indication: PAIN
     Route: 048
     Dates: start: 20000101, end: 20020101
  7. TRAZODONE HYDROCHLORIDE [Concomitant]
     Route: 065
  8. FELDENE [Concomitant]
     Route: 065
     Dates: start: 19990101
  9. ROBAXIN [Concomitant]
     Route: 065
     Dates: start: 19980101

REACTIONS (7)
  - BLOOD CHOLESTEROL INCREASED [None]
  - CEREBROVASCULAR ACCIDENT [None]
  - CHRONIC FATIGUE SYNDROME [None]
  - DEEP VEIN THROMBOSIS [None]
  - HYPERTENSION [None]
  - MYOCARDIAL INFARCTION [None]
  - PERIPHERAL VASCULAR DISORDER [None]
